FAERS Safety Report 9351931 (Version 1)
Quarter: 2013Q2

REPORT INFORMATION
  Report Type: Spontaneous
  Country: US (occurrence: US)
  Receive Date: 20130617
  Receipt Date: 20130617
  Transmission Date: 20140414
  Serious: No
  Sender: FDA-Public Use
  Company Number: US-BIOGENIDEC-2013BI052948

PATIENT
  Sex: Female

DRUGS (2)
  1. TYSABRI [Suspect]
     Indication: MULTIPLE SCLEROSIS
     Route: 042
     Dates: start: 20080908, end: 20130222
  2. SPIRIVA INHALER [Concomitant]

REACTIONS (2)
  - Tooth loss [Recovered/Resolved with Sequelae]
  - Tooth abscess [Recovered/Resolved with Sequelae]
